FAERS Safety Report 8491911-9 (Version None)
Quarter: 2012Q3

REPORT INFORMATION
  Report Type: 
  Country: None (occurrence: None)
  Receive Date: 20120706
  Receipt Date: 20111229
  Transmission Date: 20120928
  Serious: No
  Sender: FDA-Public Use
  Company Number: US-GLAXOSMITHKLINE-A0959617A

PATIENT
  Age: 82 Year
  Sex: Female

DRUGS (5)
  1. ATENOLOL [Concomitant]
  2. CELEBREX [Concomitant]
  3. BENICAR [Concomitant]
  4. CRESTOR [Concomitant]
  5. FLOVENT [Suspect]
     Indication: ASTHMA
     Dosage: 2PUFF TWICE PER DAY
     Route: 055
     Dates: start: 20111226, end: 20111227

REACTIONS (1)
  - HEART RATE INCREASED [None]
